FAERS Safety Report 14259210 (Version 1)
Quarter: 2017Q4

REPORT INFORMATION
  Report Type: Report from Study
  Country: CA (occurrence: CA)
  Receive Date: 20171207
  Receipt Date: 20171207
  Transmission Date: 20180321
  Serious: Yes (Other)
  Sender: FDA-Public Use
  Company Number: CA-BEH-2017085593

PATIENT
  Sex: Male

DRUGS (5)
  1. COVERSYL                           /00790702/ [Concomitant]
     Active Substance: PERINDOPRIL
     Route: 065
  2. IMODIUM [Concomitant]
     Active Substance: LOPERAMIDE HYDROCHLORIDE
     Route: 065
  3. INSULIN                            /00646001/ [Concomitant]
     Active Substance: INSULIN NOS
     Route: 065
  4. HIZENTRA [Suspect]
     Active Substance: HUMAN IMMUNOGLOBULIN G
     Indication: PRIMARY IMMUNODEFICIENCY SYNDROME
     Dosage: 9 IU, QW
     Route: 058
     Dates: start: 20170314
  5. PROSTATIN                          /07478801/ [Concomitant]
     Route: 065

REACTIONS (2)
  - Fatigue [Not Recovered/Not Resolved]
  - Cerebral artery embolism [Unknown]
